FAERS Safety Report 15607712 (Version 1)
Quarter: 2018Q4

REPORT INFORMATION
  Report Type: Spontaneous
  Country: JP (occurrence: JP)
  Receive Date: 20181112
  Receipt Date: 20181112
  Transmission Date: 20190205
  Serious: Yes (Hospitalization)
  Sender: FDA-Public Use
  Company Number: JP-ANIPHARMA-2018-JP-000176

PATIENT
  Age: 10 Year
  Sex: Male

DRUGS (2)
  1. ATOMOXETINE. [Concomitant]
     Active Substance: ATOMOXETINE HYDROCHLORIDE
     Dosage: 10 MG IN MORNING; 15 MG IN EVENING
  2. METHYLPHENIDATE HYDROCHLORIDE EXTENDED-RELEASE TABLETS USP (NON-SPECIF [Suspect]
     Active Substance: METHYLPHENIDATE HYDROCHLORIDE
     Indication: ATTENTION-SEEKING BEHAVIOUR
     Dosage: 18 MG DAILY

REACTIONS (1)
  - Cerebral haemorrhage [Recovered/Resolved]
